FAERS Safety Report 14567458 (Version 1)
Quarter: 2018Q1

REPORT INFORMATION
  Report Type: Spontaneous
  Country: GB (occurrence: GB)
  Receive Date: 20180223
  Receipt Date: 20180223
  Transmission Date: 20180509
  Serious: Yes (Other)
  Sender: FDA-Public Use
  Company Number: GB-AUROBINDO-AUR-APL-2018-008598

PATIENT
  Age: 56 Year
  Sex: Female

DRUGS (8)
  1. PERINDOPRIL 8MG [Suspect]
     Active Substance: PERINDOPRIL
     Indication: LETHARGY
     Dosage: 8 MG, DAILY
     Route: 065
  2. BISOPROLOL [Suspect]
     Active Substance: BISOPROLOL
     Indication: LETHARGY
     Route: 065
  3. LERCANIDIPINE [Suspect]
     Active Substance: LERCANIDIPINE
     Indication: HEADACHE
  4. PERINDOPRIL 8MG [Suspect]
     Active Substance: PERINDOPRIL
     Indication: HEADACHE
  5. BISOPROLOL [Suspect]
     Active Substance: BISOPROLOL
     Indication: HEADACHE
  6. SPIRONOLACTONE. [Suspect]
     Active Substance: SPIRONOLACTONE
     Indication: LETHARGY
     Dosage: 20 MG, DAILY
     Route: 065
  7. SPIRONOLACTONE. [Suspect]
     Active Substance: SPIRONOLACTONE
     Indication: HEADACHE
  8. LERCANIDIPINE [Suspect]
     Active Substance: LERCANIDIPINE
     Indication: LETHARGY
     Dosage: 20 MG, DAILY
     Route: 065

REACTIONS (7)
  - Renal cyst [Unknown]
  - Autoimmune thyroiditis [Unknown]
  - Renal artery fibromuscular dysplasia [Unknown]
  - Headache [Unknown]
  - Blood thyroid stimulating hormone increased [Unknown]
  - Lethargy [Unknown]
  - Renin increased [Unknown]
